FAERS Safety Report 9838970 (Version 3)
Quarter: 2014Q1

REPORT INFORMATION
  Report Type: Spontaneous
  Country: IE (occurrence: IE)
  Receive Date: 20140123
  Receipt Date: 20140211
  Transmission Date: 20141002
  Serious: Yes (Hospitalization, Other)
  Sender: FDA-Public Use
  Company Number: IE-TEVA-458161USA

PATIENT
  Age: 0 Day
  Sex: Female
  Weight: 2.18 kg

DRUGS (1)
  1. LEVONELLE [Suspect]
     Indication: PRODUCT USED FOR UNKNOWN INDICATION
     Dosage: 1.5 MILLIGRAM DAILY;
     Route: 064
     Dates: start: 20130312, end: 20130312

REACTIONS (2)
  - Metabolic disorder [Recovered/Resolved]
  - Foetal exposure during pregnancy [Recovered/Resolved]
